FAERS Safety Report 10188420 (Version 1)
Quarter: 2014Q2

REPORT INFORMATION
  Report Type: Spontaneous
  Country: CO (occurrence: CO)
  Receive Date: 20140522
  Receipt Date: 20140522
  Transmission Date: 20141212
  Serious: Yes (Death, Life-Threatening, Other)
  Sender: FDA-Public Use
  Company Number: CO-ROXANE LABORATORIES, INC.-2014-RO-00771RO

PATIENT
  Age: 19 Year
  Sex: Female

DRUGS (2)
  1. PREDNISONE [Suspect]
     Indication: SYSTEMIC LUPUS ERYTHEMATOSUS
     Dosage: 25 MG
     Route: 065
  2. RITUXIMAB [Suspect]
     Indication: SYSTEMIC LUPUS ERYTHEMATOSUS
     Route: 042

REACTIONS (6)
  - Death [Fatal]
  - Pneumocystis jirovecii pneumonia [Unknown]
  - Atrioventricular block complete [Unknown]
  - Neurological decompensation [Unknown]
  - Cushingoid [Unknown]
  - Methaemoglobinaemia [Unknown]
